FAERS Safety Report 15824980 (Version 5)
Quarter: 2022Q2

REPORT INFORMATION
  Report Type: Other
  Country: CA (occurrence: None)
  Receive Date: 20190115
  Receipt Date: 20220413
  Transmission Date: 20220721
  Serious: Yes (Other)
  Sender: FDA-Public Use
  Company Number: CA-ROCHE-2245764

PATIENT
  Age: 40 Year
  Sex: Female

DRUGS (9)
  1. OCREVUS [Suspect]
     Active Substance: OCRELIZUMAB
     Indication: Relapsing-remitting multiple sclerosis
     Route: 042
     Dates: start: 20171128
  2. TRINTELLIX [Concomitant]
     Active Substance: VORTIOXETINE HYDROBROMIDE
     Indication: Depression
     Dosage: ONGOING
  3. ETHINYL ESTRADIOL\NORGESTIMATE [Concomitant]
     Active Substance: ETHINYL ESTRADIOL\NORGESTIMATE
  4. LORATADINE [Concomitant]
     Active Substance: LORATADINE
     Dosage: ONGOING
  5. FLOVENT [Concomitant]
     Active Substance: FLUTICASONE PROPIONATE
     Dosage: ONGOING
  6. ALBUTEROL [Concomitant]
     Active Substance: ALBUTEROL
     Dosage: ONGOING
  7. IBUPROFEN [Concomitant]
     Active Substance: IBUPROFEN
     Dosage: ONGOING
  8. IBUPROFEN\METHOCARBAMOL [Concomitant]
     Active Substance: IBUPROFEN\METHOCARBAMOL
     Dosage: ONGOING
  9. CLARITIN [Concomitant]
     Active Substance: LORATADINE

REACTIONS (5)
  - Asthma [Not Recovered/Not Resolved]
  - Nasopharyngitis [Recovering/Resolving]
  - Decreased vibratory sense [Unknown]
  - Cough [Unknown]
  - Rhinorrhoea [Recovered/Resolved]

NARRATIVE: CASE EVENT DATE: 20181201
